FAERS Safety Report 6919911-8 (Version None)
Quarter: 2010Q3

REPORT INFORMATION
  Report Type: 
  Country: None (occurrence: None)
  Receive Date: 20100810
  Receipt Date: 20100810
  Transmission Date: 20110219
  Serious: No
  Sender: FDA-Public Use
  Company Number: None

PATIENT
  Age: 44 Year
  Sex: Male
  Weight: 108.8633 kg

DRUGS (3)
  1. VANCOMYCIN [Suspect]
     Indication: ABSCESS
     Dosage: 1 GM EVERY 12 HOURS IV; 1 DOSE
     Route: 042
     Dates: start: 20100806, end: 20100806
  2. VANCOMYCIN [Suspect]
     Indication: STAPHYLOCOCCUS TEST
     Dosage: 1 GM EVERY 12 HOURS IV; 1 DOSE
     Route: 042
     Dates: start: 20100806, end: 20100806
  3. VANCOMYCIN [Suspect]
     Indication: STREPTOCOCCUS TEST
     Dosage: 1 GM EVERY 12 HOURS IV; 1 DOSE
     Route: 042
     Dates: start: 20100806, end: 20100806

REACTIONS (2)
  - ERYTHEMA [None]
  - FLUSHING [None]
